FAERS Safety Report 9949700 (Version 1)
Quarter: 2014Q1

REPORT INFORMATION
  Report Type: Report from Study
  Country: US (occurrence: US)
  Receive Date: 20140304
  Receipt Date: 20140304
  Transmission Date: 20141002
  Serious: No
  Sender: FDA-Public Use
  Company Number: US-ABBVIE-13P-163-1069864-00

PATIENT
  Age: 22 Year
  Sex: Female

DRUGS (3)
  1. HUMIRA [Suspect]
     Indication: CROHN^S DISEASE
     Dosage: DAY ONE
     Dates: start: 20130315, end: 20130318
  2. HUMIRA [Suspect]
     Dosage: DAY 15
  3. HUMIRA [Suspect]

REACTIONS (7)
  - Fatigue [Unknown]
  - Malaise [Unknown]
  - Chromaturia [Unknown]
  - Injection site pruritus [Unknown]
  - Injection site rash [Unknown]
  - Insomnia [Unknown]
  - Fatigue [Unknown]
